FAERS Safety Report 13152233 (Version 1)
Quarter: 2017Q1

REPORT INFORMATION
  Report Type: Spontaneous
  Country: JP (occurrence: JP)
  Receive Date: 20170125
  Receipt Date: 20170125
  Transmission Date: 20170428
  Serious: Yes (Hospitalization, Other)
  Sender: FDA-Public Use
  Company Number: JP-PFIZER INC-2017030228

PATIENT
  Age: 89 Year
  Sex: Female

DRUGS (1)
  1. LYRICA [Suspect]
     Active Substance: PREGABALIN
     Indication: MUSCULOSKELETAL PAIN
     Dosage: 25 MG, 2X/DAY
     Route: 048

REACTIONS (4)
  - Renal failure [Unknown]
  - Blood creatinine increased [Unknown]
  - Product use issue [Unknown]
  - Cardiac failure [Unknown]
